FAERS Safety Report 25500710 (Version 1)
Quarter: 2025Q3

REPORT INFORMATION
  Report Type: Spontaneous
  Country: EU (occurrence: EU)
  Receive Date: 20250701
  Receipt Date: 20250701
  Transmission Date: 20251021
  Serious: Yes (Other)
  Sender: PFIZER
  Company Number: EU-AMAROX PHARMA-AMR2025ES03481

PATIENT
  Age: 47 Year
  Sex: Female

DRUGS (8)
  1. CYTARABINE [Suspect]
     Active Substance: CYTARABINE
     Indication: Staphylococcal bacteraemia
     Route: 065
  2. CYTARABINE [Suspect]
     Active Substance: CYTARABINE
     Indication: Device related bacteraemia
     Dates: start: 20250212
  3. DAPTOMYCIN [Suspect]
     Active Substance: DAPTOMYCIN
     Indication: Staphylococcal bacteraemia
     Route: 065
     Dates: start: 20241229, end: 20250111
  4. DAPTOMYCIN [Suspect]
     Active Substance: DAPTOMYCIN
     Indication: Device related bacteraemia
  5. ICLUSIG [Suspect]
     Active Substance: PONATINIB HYDROCHLORIDE
     Indication: Philadelphia positive acute lymphocytic leukaemia
     Route: 065
     Dates: start: 20241019, end: 20250107
  6. ICLUSIG [Suspect]
     Active Substance: PONATINIB HYDROCHLORIDE
     Dosage: 15 MG, 1X/DAY (15 MILLIGRAM, QD)
     Route: 065
     Dates: start: 20250213, end: 20250321
  7. ICLUSIG [Suspect]
     Active Substance: PONATINIB HYDROCHLORIDE
     Route: 065
     Dates: start: 20250321
  8. HYDROCORTISONE [Concomitant]
     Active Substance: HYDROCORTISONE
     Route: 065

REACTIONS (3)
  - Pericardial effusion [Unknown]
  - Hepatotoxicity [Recovering/Resolving]
  - Off label use [Unknown]

NARRATIVE: CASE EVENT DATE: 20250103
